FAERS Safety Report 5065675-5 (Version None)
Quarter: 2006Q3

REPORT INFORMATION
  Report Type: 
  Country: None (occurrence: None)
  Receive Date: 20060731
  Receipt Date: 20060620
  Transmission Date: 20061208
  Serious: Yes (Hospitalization)
  Sender: FDA-Public Use
  Company Number: 2006SE03525

PATIENT
  Age: 15654 Day
  Sex: Male

DRUGS (2)
  1. ATACAND [Suspect]
     Indication: HYPERTENSION
     Route: 048
     Dates: start: 20040101
  2. ARCOXIA [Suspect]
     Indication: ARTHRALGIA
     Route: 048
     Dates: start: 20060529, end: 20060602

REACTIONS (10)
  - BLOOD GLUCOSE INCREASED [None]
  - ERYSIPELAS [None]
  - HEART RATE INCREASED [None]
  - HYPOAESTHESIA [None]
  - NERVE COMPRESSION [None]
  - OEDEMA [None]
  - RENAL FAILURE [None]
  - RENAL FAILURE ACUTE [None]
  - SENSORY LOSS [None]
  - STAPHYLOCOCCAL INFECTION [None]
